FAERS Safety Report 14824011 (Version 3)
Quarter: 2018Q4

REPORT INFORMATION
  Report Type: Report from Study
  Country: US (occurrence: US)
  Receive Date: 20180428
  Receipt Date: 20181009
  Transmission Date: 20190204
  Serious: Yes (Other)
  Sender: FDA-Public Use
  Company Number: PHEH2018US016581

PATIENT
  Sex: Male

DRUGS (1)
  1. COSENTYX [Suspect]
     Active Substance: SECUKINUMAB
     Indication: PSORIATIC ARTHROPATHY
     Dosage: 300 MG, QW
     Route: 058
     Dates: start: 20180313

REACTIONS (5)
  - Nail discolouration [Recovering/Resolving]
  - Back pain [Recovering/Resolving]
  - Nail disorder [Recovering/Resolving]
  - Nail bed disorder [Recovering/Resolving]
  - Psoriatic arthropathy [Recovering/Resolving]
